FAERS Safety Report 22344943 (Version 1)
Quarter: 2023Q2

REPORT INFORMATION
  Report Type: Other
  Country: GR (occurrence: GR)
  Receive Date: 20230519
  Receipt Date: 20230519
  Transmission Date: 20230721
  Serious: No
  Sender: FDA-Public Use
  Company Number: GR-Blueprint Medicines Corporation-LT-GR-2023-000814

PATIENT
  Age: 73 Year
  Sex: Female

DRUGS (1)
  1. AVAPRITINIB [Suspect]
     Active Substance: AVAPRITINIB
     Indication: Gastrointestinal stromal tumour
     Route: 065

REACTIONS (3)
  - Nausea [Unknown]
  - Swelling [Unknown]
  - Diarrhoea [Unknown]
